FAERS Safety Report 13405569 (Version 2)
Quarter: 2017Q2

REPORT INFORMATION
  Report Type: Report from Study
  Country: RO (occurrence: RO)
  Receive Date: 20170405
  Receipt Date: 20170522
  Transmission Date: 20170830
  Serious: Yes (Other)
  Sender: FDA-Public Use
  Company Number: RO-TOLMAR, INC.-2017RO004081

PATIENT
  Age: 76 Year
  Sex: Male
  Weight: 80 kg

DRUGS (5)
  1. BICALUTAMIDE. [Concomitant]
     Active Substance: BICALUTAMIDE
     Indication: ANTIANDROGEN THERAPY
     Dosage: UNK
     Dates: start: 20141120, end: 20150807
  2. ACIDUM ZOLEDRONICUM [Concomitant]
     Indication: PROSTATE CANCER
  3. ELIGARD [Suspect]
     Active Substance: LEUPROLIDE ACETATE
     Indication: PROSTATE CANCER
     Dosage: 45 MG, EVERY 6 MONTHS
     Route: 065
     Dates: start: 20150807
  4. ELIGARD [Suspect]
     Active Substance: LEUPROLIDE ACETATE
     Dosage: 45 MG, EVERY 6 MONTHS
     Route: 065
     Dates: start: 20160211, end: 20160211
  5. DOCETAXEL. [Concomitant]
     Active Substance: DOCETAXEL
     Dosage: 75 MG/M2, UNK
     Dates: start: 20151209

REACTIONS (1)
  - Prostate cancer [Unknown]
